FAERS Safety Report 12742517 (Version 2)
Quarter: 2016Q4

REPORT INFORMATION
  Report Type: Spontaneous
  Country: IT (occurrence: IT)
  Receive Date: 20160914
  Receipt Date: 20161123
  Transmission Date: 20170207
  Serious: Yes (Life-Threatening, Hospitalization, Other)
  Sender: FDA-Public Use
  Company Number: IT-ELI_LILLY_AND_COMPANY-IT201609001720

PATIENT
  Age: 83 Year
  Sex: Male
  Weight: 71 kg

DRUGS (5)
  1. FOLIC ACID. [Concomitant]
     Active Substance: FOLIC ACID
     Indication: PROPHYLAXIS
     Dosage: 400 UG, QD
     Route: 065
     Dates: start: 20151113
  2. ALIMTA [Suspect]
     Active Substance: PEMETREXED DISODIUM
     Dosage: 500 MG, CYCLICAL
     Route: 042
     Dates: start: 20160708
  3. ALIMTA [Suspect]
     Active Substance: PEMETREXED DISODIUM
     Indication: LUNG ADENOCARCINOMA METASTATIC
     Dosage: UNK
     Route: 065
     Dates: start: 20151120
  4. ALIMTA [Suspect]
     Active Substance: PEMETREXED DISODIUM
     Dosage: 100 MG, CYCLICAL
     Route: 042
     Dates: start: 20160708
  5. VITAMIN B12 [Concomitant]
     Active Substance: CYANOCOBALAMIN
     Indication: PROPHYLAXIS
     Dosage: 1000 UG, EVERY 9 WEEKS
     Route: 065
     Dates: start: 20151113

REACTIONS (5)
  - Thrombocytopenia [Unknown]
  - Malignant neoplasm progression [Unknown]
  - Epistaxis [Recovered/Resolved]
  - Atrial fibrillation [Recovered/Resolved]
  - Haemoptysis [Recovered/Resolved]

NARRATIVE: CASE EVENT DATE: 20160721
